FAERS Safety Report 6279482-9 (Version None)
Quarter: 2009Q3

REPORT INFORMATION
  Report Type: 
  Country: None (occurrence: None)
  Receive Date: 20090723
  Receipt Date: 20090713
  Transmission Date: 20100115
  Serious: Yes (Death)
  Sender: FDA-Public Use
  Company Number: KR-PFIZER INC-2009232067

PATIENT
  Age: 41 Year

DRUGS (3)
  1. CAMPTOSAR [Suspect]
     Indication: GASTRIC CANCER
     Dosage: 304 MG, UNK
     Route: 042
     Dates: start: 20090518
  2. CALCIUM LEVOFOLINATE [Concomitant]
     Dosage: 338 MG, UNK
     Route: 042
     Dates: start: 20090518
  3. FLUOROURACIL [Concomitant]
     Dosage: 1690 MG, UNK
     Dates: start: 20090518, end: 20090519

REACTIONS (4)
  - ASTHENIA [None]
  - DECREASED APPETITE [None]
  - NAUSEA [None]
  - VOMITING [None]
